FAERS Safety Report 5451720-1 (Version None)
Quarter: 2007Q3

REPORT INFORMATION
  Report Type: 
  Country: None (occurrence: None)
  Receive Date: 20070806
  Receipt Date: 20061114
  Transmission Date: 20080115
  Serious: Yes (Other)
  Sender: FDA-Public Use
  Company Number: 32230

PATIENT
  Sex: Male

DRUGS (2)
  1. MIDAZOLAM HCL [Suspect]
     Indication: ENDOSCOPY
     Dosage: 2MG/IV/X1
     Route: 042
     Dates: start: 20061114
  2. PROPOFOL [Concomitant]

REACTIONS (2)
  - EUPHORIC MOOD [None]
  - HALLUCINATION [None]
